FAERS Safety Report 9839886 (Version 1)
Quarter: 2014Q1

REPORT INFORMATION
  Report Type: Spontaneous
  Country: IL (occurrence: IL)
  Receive Date: 20140124
  Receipt Date: 20140124
  Transmission Date: 20141002
  Serious: Yes (Life-Threatening)
  Sender: FDA-Public Use
  Company Number: PHHY2014IL007796

PATIENT
  Sex: Male

DRUGS (3)
  1. CERTICAN [Suspect]
     Indication: HEART TRANSPLANT
     Dosage: BID
     Route: 048
     Dates: end: 20140119
  2. CERTICAN [Suspect]
     Indication: RENAL TRANSPLANT
  3. CELLCEPT [Concomitant]
     Dosage: UNK UKN, UNK

REACTIONS (1)
  - Cerebrovascular accident [Not Recovered/Not Resolved]
